FAERS Safety Report 9312220 (Version 2)
Quarter: 2013Q3

REPORT INFORMATION
  Report Type: Report from Study
  Country: US (occurrence: US)
  Receive Date: 20130528
  Receipt Date: 20130723
  Transmission Date: 20140515
  Serious: Yes (Other)
  Sender: FDA-Public Use
  Company Number: US-ABBOTT-13P-163-1093197-00

PATIENT
  Sex: Female
  Weight: 59.47 kg

DRUGS (2)
  1. HUMIRA [Suspect]
     Indication: RHEUMATOID ARTHRITIS
  2. NASONEX [Concomitant]
     Indication: SINUSITIS
     Dosage: 1 SPRAY EACH NOSTRIL

REACTIONS (6)
  - Bunion [Unknown]
  - Skin lesion [Unknown]
  - Squamous cell carcinoma of skin [Unknown]
  - Pain [Unknown]
  - Paraesthesia [Unknown]
  - Sinusitis [Unknown]
